FAERS Safety Report 4843282-4 (Version None)
Quarter: 2005Q4

REPORT INFORMATION
  Report Type: 
  Country: None (occurrence: None)
  Receive Date: 20051201
  Receipt Date: 20051118
  Transmission Date: 20060501
  Serious: Yes (Hospitalization, Other)
  Sender: FDA-Public Use
  Company Number: US-MERCK-0511USA03398

PATIENT
  Age: 59 Year
  Sex: Female
  Weight: 80 kg

DRUGS (19)
  1. VIOXX [Suspect]
     Indication: ARTHRITIS
     Route: 048
     Dates: start: 20000201, end: 20041001
  2. GLUCOTROL [Concomitant]
     Indication: DIABETES MELLITUS
     Route: 065
  3. [THERAPY UNSPECIFIED] [Concomitant]
     Route: 065
  4. ALBUTEROL [Concomitant]
     Indication: DYSPNOEA
     Route: 065
  5. PREDNISONE [Concomitant]
     Indication: ARTHRITIS
     Route: 065
     Dates: start: 20010801, end: 20010901
  6. GLUCOPHAGE [Concomitant]
     Route: 065
  7. IBUPROFEN [Concomitant]
     Indication: ARTHRITIS
     Route: 065
     Dates: start: 20021101, end: 20021201
  8. ACTOS [Concomitant]
     Indication: DIABETES MELLITUS
     Route: 065
  9. TRIMOX [Concomitant]
     Route: 065
  10. DEMADEX [Concomitant]
     Route: 065
  11. ALPRAZOLAM [Concomitant]
     Route: 065
  12. GLIPIZIDE [Concomitant]
     Indication: DIABETES MELLITUS
     Route: 065
  13. AMOXICILLIN [Concomitant]
     Route: 065
  14. OXAPROZIN [Concomitant]
     Route: 065
  15. CYCLOBENZAPRINE HYDROCHLORIDE [Concomitant]
     Indication: ARTHRITIS
     Route: 065
     Dates: start: 20010901, end: 20011001
  16. PENTOXIFYLLINE [Concomitant]
     Route: 065
  17. NABUMETONE [Concomitant]
     Route: 065
  18. METFORMIN [Concomitant]
     Indication: DIABETES MELLITUS
     Route: 065
  19. PLETAL [Concomitant]
     Route: 065

REACTIONS (8)
  - ARTHROPATHY [None]
  - CEREBROVASCULAR DISORDER [None]
  - DEPRESSION [None]
  - HYPERCHOLESTEROLAEMIA [None]
  - HYPERTENSION [None]
  - MYOCARDIAL INFARCTION [None]
  - PERIPHERAL VASCULAR DISORDER [None]
  - RENAL FAILURE CHRONIC [None]
